FAERS Safety Report 5016901-X (Version None)
Quarter: 2006Q2

REPORT INFORMATION
  Report Type: 
  Country: None (occurrence: None)
  Receive Date: 20060526
  Receipt Date: 20060512
  Transmission Date: 20061013
  Serious: Yes (Hospitalization, Disabling)
  Sender: FDA-Public Use
  Company Number: IE200605002607

PATIENT
  Age: 55 Year
  Sex: Female

DRUGS (2)
  1. GEMZAR [Suspect]
     Indication: NON-SMALL CELL LUNG CANCER
     Dosage: 1250 MG/M2
  2. CISPLATIN [Concomitant]

REACTIONS (3)
  - CONVULSION [None]
  - ENCEPHALITIS [None]
  - NAUSEA [None]
